FAERS Safety Report 16165998 (Version 2)
Quarter: 2019Q2

REPORT INFORMATION
  Report Type: Spontaneous
  Country: GR (occurrence: GR)
  Receive Date: 20190406
  Receipt Date: 20190411
  Transmission Date: 20190711
  Serious: Yes (Other)
  Sender: FDA-Public Use
  Company Number: GR-009507513-1903GRC000817

PATIENT
  Age: 39 Year
  Sex: Male

DRUGS (2)
  1. NASONEX [Suspect]
     Active Substance: MOMETASONE FUROATE
     Indication: NASAL POLYPS
     Dosage: 1 ACTUATION IN THE MORNING AND 1 ACTUATION IN THE NIGHT AND SOME PERIODS WHEN CONGESTED TOO MUCH, RE
     Route: 045
  2. BILASTINE [Concomitant]
     Active Substance: BILASTINE
     Dosage: 1 PER NIGHT

REACTIONS (2)
  - Autoimmune thyroiditis [Unknown]
  - Incorrect dose administered [Unknown]

NARRATIVE: CASE EVENT DATE: 201901
